FAERS Safety Report 5947123-3 (Version None)
Quarter: 2008Q4

REPORT INFORMATION
  Report Type: 
  Country: None (occurrence: None)
  Receive Date: 20081110
  Receipt Date: 20081030
  Transmission Date: 20090506
  Serious: Yes (Life-Threatening)
  Sender: FDA-Public Use
  Company Number: UA-JNJFOC-20081100329

PATIENT
  Age: 39 Year
  Sex: Female

DRUGS (3)
  1. REMICADE [Suspect]
     Route: 042
  2. REMICADE [Suspect]
     Indication: CROHN'S DISEASE
     Route: 042
  3. PREDNISOLONE [Concomitant]
     Dosage: DOSE REPORTED AS ^90 MG^

REACTIONS (4)
  - ENCEPHALITIS [None]
  - INTESTINAL RESECTION [None]
  - RASH [None]
  - SEPSIS [None]
